FAERS Safety Report 24053167 (Version 2)
Quarter: 2024Q3

REPORT INFORMATION
  Report Type: Spontaneous
  Country: US (occurrence: US)
  Receive Date: 20240705
  Receipt Date: 20240710
  Transmission Date: 20241016
  Serious: Yes (Other)
  Sender: BRISTOL MYERS SQUIBB
  Company Number: US-BRISTOL-MYERS SQUIBB COMPANY-2024-106713

PATIENT
  Age: 71 Year
  Sex: Female
  Weight: 77.3 kg

DRUGS (20)
  1. POMALYST [Suspect]
     Active Substance: POMALIDOMIDE
     Indication: Plasma cell myeloma
     Dosage: DAILY X 21 DAYS, OFF 7 DAY
     Route: 048
     Dates: start: 20240607
  2. EMPLICITI [Concomitant]
     Active Substance: ELOTUZUMAB
     Dosage: 1 VIAL
  3. ACYCLOVIR [Concomitant]
     Active Substance: ACYCLOVIR
  4. BUMETANIDE [Concomitant]
     Active Substance: BUMETANIDE
  5. CALCITRIOL [Concomitant]
     Active Substance: CALCITRIOL
  6. ELIQUIS [Concomitant]
     Active Substance: APIXABAN
  7. FLUOXETINE [Concomitant]
     Active Substance: FLUOXETINE HYDROCHLORIDE
  8. FLUTICASONE [Concomitant]
     Active Substance: FLUTICASONE
     Dosage: (120) RX
  9. FOLIC ACID [Concomitant]
     Active Substance: FOLIC ACID
  10. ALBUTEROL\IPRATROPIUM [Concomitant]
     Active Substance: ALBUTEROL\IPRATROPIUM
     Dosage: 0.5/3MG 30X3ML
  11. IPRATROPIUM [Concomitant]
     Active Substance: IPRATROPIUM
     Dosage: 30 ML(345)
  12. METOPROLOL SUCCINATE [Concomitant]
     Active Substance: METOPROLOL SUCCINATE
  13. MONTELUKAST [Concomitant]
     Active Substance: MONTELUKAST SODIUM
  14. ONDANSETRON [Concomitant]
     Active Substance: ONDANSETRON
  15. POTASSIUM CHLORIDE [Concomitant]
     Active Substance: POTASSIUM CHLORIDE
     Dosage: ER
  16. PRAVASTATIN [Concomitant]
     Active Substance: PRAVASTATIN
  17. ROPINIROLE [Concomitant]
     Active Substance: ROPINIROLE
  18. SYMBICORT [Concomitant]
     Active Substance: BUDESONIDE\FORMOTEROL FUMARATE DIHYDRATE
     Dosage: 160/4.5MCG (120 ORAL INH)
     Route: 048
  19. VITAMIN D2 [Concomitant]
     Active Substance: ERGOCALCIFEROL
     Dosage: (ERGO) RX
  20. CYANOCOBALAMIN [Concomitant]
     Active Substance: CYANOCOBALAMIN
     Dosage: 1000 MCG/ML INJ 1ML

REACTIONS (1)
  - Neutropenia [Unknown]

NARRATIVE: CASE EVENT DATE: 20240624
